FAERS Safety Report 9250530 (Version 1)
Quarter: 2013Q1

REPORT INFORMATION
  Report Type: Spontaneous
  Country: US (occurrence: None)
  Receive Date: 20130305
  Receipt Date: 20130305
  Transmission Date: 20140127
  Serious: Yes (Life-Threatening, Hospitalization)
  Sender: FDA-Public Use
  Company Number: 163-21880-12040467

PATIENT
  Age: 59 Year
  Sex: Female

DRUGS (8)
  1. REVLIMID [Suspect]
     Indication: PLASMA CELL MYELOMA
     Dosage: 25 MG, DAILY 3 WEEKS ON 1 WK OFF, PO
     Route: 048
     Dates: start: 20120312
  2. FAMOTIDINE (FAMOTIDINE) [Suspect]
  3. VELCADE (BORTEZOMIB) [Suspect]
  4. ACYCLOVIR (ACICLOVIR) (ACICLOVIR) [Suspect]
  5. OXYCODONE (OXYCODONE) [Suspect]
  6. OMEPRAZOLE (OMEPRAZOLE) [Suspect]
  7. REGLAN [Suspect]
  8. ACTIVELLE [Suspect]

REACTIONS (5)
  - Pulmonary embolism [None]
  - Thrombosis [None]
  - Local swelling [None]
  - Muscle spasms [None]
  - Pain in extremity [None]
